FAERS Safety Report 9343747 (Version 1)
Quarter: 2013Q2

REPORT INFORMATION
  Report Type: Report from Study
  Country: CA (occurrence: CA)
  Receive Date: 20130612
  Receipt Date: 20130612
  Transmission Date: 20140414
  Serious: Yes (Other)
  Sender: FDA-Public Use
  Company Number: CA-JNJFOC-20130604327

PATIENT
  Age: 71 Year
  Sex: Female
  Weight: 55 kg

DRUGS (2)
  1. REMICADE [Suspect]
     Indication: CROHN^S DISEASE
     Route: 042
     Dates: start: 2011
  2. IRON [Suspect]
     Indication: PRODUCT USED FOR UNKNOWN INDICATION
     Route: 042

REACTIONS (4)
  - Infusion related reaction [Recovered/Resolved]
  - Lung infection [Recovered/Resolved]
  - Decreased appetite [Not Recovered/Not Resolved]
  - Eating disorder [Not Recovered/Not Resolved]
